FAERS Safety Report 6331011-7 (Version None)
Quarter: 2009Q3

REPORT INFORMATION
  Report Type: 
  Country: None (occurrence: None)
  Receive Date: 20090827
  Receipt Date: 20090826
  Transmission Date: 20100115
  Serious: Yes (Other)
  Sender: FDA-Public Use
  Company Number: A0793980A

PATIENT
  Age: 68 Year
  Sex: Female

DRUGS (6)
  1. RYTHMOL SR [Suspect]
     Indication: DRUG USE FOR UNKNOWN INDICATION
     Dosage: 325MG UNKNOWN
     Route: 048
  2. PLAVIX [Concomitant]
  3. CRESTOR [Concomitant]
  4. IMDUR [Concomitant]
  5. PRANDIN [Concomitant]
  6. NEXIUM [Concomitant]

REACTIONS (3)
  - ERYTHEMA [None]
  - HYPERSENSITIVITY [None]
  - PRURITUS [None]
